FAERS Safety Report 26040840 (Version 1)
Quarter: 2025Q4

REPORT INFORMATION
  Report Type: Spontaneous
  Country: US (occurrence: None)
  Receive Date: 20251113
  Receipt Date: 20251113
  Transmission Date: 20260118
  Serious: Yes (Hospitalization)
  Sender: FDA-CTU
  Company Number: None

PATIENT
  Age: 44 Year
  Sex: Male
  Weight: 91.4 kg

DRUGS (3)
  1. DEXAMETHASONE [Suspect]
     Active Substance: DEXAMETHASONE
     Dates: start: 20251030
  2. FLOXURIDINE [Suspect]
     Active Substance: FLOXURIDINE
     Dates: start: 20251030
  3. HEPARIN SODIUM [Suspect]
     Active Substance: HEPARIN SODIUM
     Dates: start: 20251102

REACTIONS (10)
  - Encephalopathy [None]
  - Hypertension [None]
  - Aspartate aminotransferase increased [None]
  - Alanine aminotransferase increased [None]
  - Hypoxia [None]
  - Tachycardia [None]
  - Generalised tonic-clonic seizure [None]
  - Encephalomalacia [None]
  - Gliosis [None]
  - Meningitis [None]

NARRATIVE: CASE EVENT DATE: 20251103
